FAERS Safety Report 16538889 (Version 6)
Quarter: 2020Q2

REPORT INFORMATION
  Report Type: Report from Study
  Country: JP (occurrence: JP)
  Receive Date: 20190708
  Receipt Date: 20200605
  Transmission Date: 20200713
  Serious: Yes (Death, Hospitalization, Other)
  Sender: FDA-Public Use
  Company Number: JP-ASTELLAS-2019JP013339

PATIENT
  Age: 74 Year
  Sex: Female
  Weight: 61 kg

DRUGS (1)
  1. ASP2215 [Suspect]
     Active Substance: GILTERITINIB
     Indication: ACUTE MYELOID LEUKAEMIA REFRACTORY
     Route: 048
     Dates: start: 20190301, end: 20190807

REACTIONS (6)
  - Haemolysis [Recovering/Resolving]
  - Rash [Recovered/Resolved]
  - Rash [Not Recovered/Not Resolved]
  - Rash [Recovered/Resolved]
  - Acute myeloid leukaemia [Fatal]
  - Liver disorder [Not Recovered/Not Resolved]

NARRATIVE: CASE EVENT DATE: 20190304
